FAERS Safety Report 10873765 (Version 2)
Quarter: 2015Q1

REPORT INFORMATION
  Report Type: Spontaneous
  Country: US (occurrence: US)
  Receive Date: 20150227
  Receipt Date: 20150310
  Transmission Date: 20150721
  Serious: Yes (Hospitalization, Other)
  Sender: FDA-Public Use
  Company Number: US-ELI_LILLY_AND_COMPANY-US201502006065

PATIENT
  Sex: Female

DRUGS (3)
  1. CYMBALTA [Suspect]
     Active Substance: DULOXETINE HYDROCHLORIDE
     Indication: PRODUCT USED FOR UNKNOWN INDICATION
     Dosage: UNK
     Dates: start: 201401, end: 20150209
  2. GABAPENTIN. [Concomitant]
     Active Substance: GABAPENTIN
  3. BUSPIRONE [Concomitant]
     Active Substance: BUSPIRONE HYDROCHLORIDE

REACTIONS (25)
  - Pain [Unknown]
  - Visual acuity reduced [Unknown]
  - Fall [Unknown]
  - Drug withdrawal syndrome [Unknown]
  - Nausea [Unknown]
  - Cutis laxa [Unknown]
  - Hypertension [Unknown]
  - Panic attack [Unknown]
  - Weight decreased [Unknown]
  - Tic [Unknown]
  - Intentional product misuse [Unknown]
  - Hallucination, auditory [Not Recovered/Not Resolved]
  - Migraine [Unknown]
  - Pruritus [Unknown]
  - Dizziness [Unknown]
  - Paraesthesia [Not Recovered/Not Resolved]
  - Anxiety [Not Recovered/Not Resolved]
  - Vomiting [Unknown]
  - Crying [Unknown]
  - Decreased appetite [Unknown]
  - Speech disorder [Not Recovered/Not Resolved]
  - Anger [Unknown]
  - Suicidal ideation [Unknown]
  - Hypersomnia [Unknown]
  - Peripheral swelling [Unknown]
